FAERS Safety Report 8685600 (Version 2)
Quarter: 2013Q4

REPORT INFORMATION
  Report Type: Spontaneous
  Country: US (occurrence: US)
  Receive Date: 20120726
  Receipt Date: 20131101
  Transmission Date: 20140711
  Serious: No
  Sender: FDA-Public Use
  Company Number: US-009507513-1207USA010190

PATIENT
  Age: 6 Year
  Sex: Male

DRUGS (1)
  1. CLARITIN [Suspect]
     Indication: PRODUCT USED FOR UNKNOWN INDICATION
     Dosage: 40 MG, ONCE
     Route: 048

REACTIONS (2)
  - Overdose [Unknown]
  - Accidental exposure to product by child [Unknown]
